FAERS Safety Report 4938396-4 (Version None)
Quarter: 2006Q1

REPORT INFORMATION
  Report Type: 
  Country: None (occurrence: None)
  Receive Date: 20060309
  Receipt Date: 20051228
  Transmission Date: 20060701
  Serious: Yes (Death, Life-Threatening)
  Sender: FDA-Public Use
  Company Number: JP-SANOFI-SYNTHELABO-F01200502879

PATIENT
  Sex: Male
  Weight: 57 kg

DRUGS (4)
  1. OXALIPLATIN [Suspect]
     Indication: COLON CANCER
     Route: 042
     Dates: start: 20050831, end: 20050831
  2. FLUOROURACIL [Suspect]
     Dosage: 625 MG/BODY=398.1 MG/M2 IN BOLUS THEN 950 MG/BODY=605.1 MG/M2 AS CONTINUOUS INFUSION, D1+2
     Route: 042
     Dates: start: 20050831, end: 20050901
  3. CALCIUM LEVOFOLINATE [Suspect]
     Route: 042
     Dates: start: 20050831, end: 20050901
  4. LENOGRASTIM [Suspect]
     Indication: NEUTROPENIA
     Route: 058
     Dates: start: 20051215, end: 20060126

REACTIONS (9)
  - ASCITES [None]
  - DISEASE PROGRESSION [None]
  - HAEMOGLOBIN DECREASED [None]
  - HEPATIC FAILURE [None]
  - INTERSTITIAL LUNG DISEASE [None]
  - MULTI-ORGAN FAILURE [None]
  - NEUTROPENIA [None]
  - RESPIRATORY FAILURE [None]
  - THROMBOCYTOPENIA [None]
